FAERS Safety Report 12531599 (Version 2)
Quarter: 2016Q3

REPORT INFORMATION
  Report Type: Spontaneous
  Country: CN (occurrence: CN)
  Receive Date: 20160706
  Receipt Date: 20160707
  Transmission Date: 20161109
  Serious: No
  Sender: FDA-Public Use
  Company Number: CN-009507513-1511CHN012445

PATIENT
  Age: 39 Year
  Sex: Male
  Weight: 68 kg

DRUGS (10)
  1. LANSOPRAZOLE. [Concomitant]
     Active Substance: LANSOPRAZOLE
     Indication: PROPHYLAXIS AGAINST GASTROINTESTINAL ULCER
     Dosage: 30 MG, DAILY
     Route: 041
     Dates: start: 20151020, end: 20151026
  2. AMIFOSTINE. [Concomitant]
     Active Substance: AMIFOSTINE
     Indication: PROPHYLAXIS
     Dosage: 400 MG, DAILY
     Route: 041
     Dates: start: 20151020, end: 20151025
  3. EMEND [Suspect]
     Active Substance: APREPITANT
     Dosage: 80 MG, QD
     Route: 048
     Dates: start: 20151022, end: 20151023
  4. PALONOSETRON HYDROCHLORIDE. [Concomitant]
     Active Substance: PALONOSETRON HYDROCHLORIDE
     Indication: ALLERGY PROPHYLAXIS
     Dosage: 0.25 MG, DAILY
     Route: 041
     Dates: start: 20151021, end: 20151028
  5. ZHEN QI FU ZHENG [Concomitant]
     Indication: SUPPLEMENTATION THERAPY
     Dosage: 250 ML/CC, DAILY
     Route: 041
     Dates: start: 20151020, end: 20151026
  6. CISPLATIN. [Concomitant]
     Active Substance: CISPLATIN
     Indication: CHEMOTHERAPY
     Dosage: GEMCITABINE INJECTION 1.8G D1, 5 + CISPLATIN INJECTIO 5 MG, DAY 2 TO DAY 4 TREATMENT CYCLE 1/UNKNOWN
     Route: 041
     Dates: start: 20151021, end: 20151024
  7. PALONOSETRON HYDROCHLORIDE. [Concomitant]
     Active Substance: PALONOSETRON HYDROCHLORIDE
     Indication: PROPHYLAXIS OF NAUSEA AND VOMITING
     Dosage: TOTAL DAILY DOSE: 0.25 MG (QD)
     Route: 042
     Dates: start: 20151020, end: 20151020
  8. MONOSIALOGANGLIOSIDE SODIUM [Concomitant]
     Indication: NERVOUS SYSTEM DISORDER
     Dosage: 80 MG, DAILY
     Route: 041
     Dates: start: 20151020, end: 20151026
  9. EMEND [Suspect]
     Active Substance: APREPITANT
     Indication: PROPHYLAXIS OF NAUSEA AND VOMITING
     Dosage: 125 MG, ONCE
     Route: 048
     Dates: start: 20151021, end: 20151021
  10. GEMCITABINE [Concomitant]
     Active Substance: GEMCITABINE\GEMCITABINE HYDROCHLORIDE
     Indication: CHEMOTHERAPY
     Dosage: 1.8 G D1,5 + CISPLATIN INJECTION 45MG D2 TO D4(TREATMENT CYCLE 1)
     Route: 041
     Dates: start: 20151020, end: 20151024

REACTIONS (1)
  - White blood cell count decreased [Recovered/Resolved]

NARRATIVE: CASE EVENT DATE: 20151025
